FAERS Safety Report 17502111 (Version 1)
Quarter: 2020Q1

REPORT INFORMATION
  Report Type: Spontaneous
  Country: GB (occurrence: GB)
  Receive Date: 20200305
  Receipt Date: 20200305
  Transmission Date: 20200409
  Serious: Yes (Life-Threatening, Other)
  Sender: FDA-Public Use
  Company Number: GB-PFIZER INC-02H-167-0114989-00

PATIENT
  Age: 63 Year
  Sex: Female
  Weight: 89 kg

DRUGS (8)
  1. FENTANYL CITRATE. [Suspect]
     Active Substance: FENTANYL CITRATE
     Dosage: UNK
  2. VECURONIUM BROMIDE. [Suspect]
     Active Substance: VECURONIUM BROMIDE
     Dosage: UNK
  3. TEMAZEPAM. [Concomitant]
     Active Substance: TEMAZEPAM
     Dosage: 20 MG, FREQ: INCREMENTAL DOSES ONCE
     Route: 048
     Dates: start: 19991201, end: 19991201
  4. PROPOFOL. [Suspect]
     Active Substance: PROPOFOL
     Dosage: 200 MG, FREQ: 200MG X1 ONCE
     Route: 042
     Dates: start: 19991201, end: 19991201
  5. METOCLOPRAMIDE. [Concomitant]
     Active Substance: METOCLOPRAMIDE
     Dosage: 10 MG, FREQ: 0.5MG X1 ONCE
     Route: 042
     Dates: start: 19991201, end: 19991201
  6. METOPROLOL. [Concomitant]
     Active Substance: METOPROLOL
     Dosage: FREQ: UNKNOWN
     Route: 048
  7. RANITIDINE. [Concomitant]
     Active Substance: RANITIDINE
     Dosage: 150 MG, FREQ: 0.3MG X2 DOSES ONCE
     Route: 048
     Dates: start: 19991201, end: 19991201
  8. LEVOTHYROXINE SODIUM. [Concomitant]
     Active Substance: LEVOTHYROXINE SODIUM
     Dosage: UNK
     Route: 048

REACTIONS (5)
  - Anaphylactic reaction [Recovered/Resolved]
  - Heart rate decreased [Recovered/Resolved]
  - Nodal rhythm [Recovered/Resolved]
  - Oxygen saturation decreased [Recovered/Resolved]
  - Vasodilatation [Recovered/Resolved]

NARRATIVE: CASE EVENT DATE: 19991201
